FAERS Safety Report 6612622-8 (Version None)
Quarter: 2010Q1

REPORT INFORMATION
  Report Type: 
  Country: None (occurrence: None)
  Receive Date: 20100303
  Receipt Date: 20100226
  Transmission Date: 20100710
  Serious: Yes (Death, Other)
  Sender: FDA-Public Use
  Company Number: US-GILEAD-2010-0027369

PATIENT
  Sex: Male

DRUGS (2)
  1. HEPSERA [Suspect]
     Indication: HEPATITIS B
  2. VIREAD [Suspect]
     Indication: HIV INFECTION

REACTIONS (3)
  - DEATH [None]
  - DRUG ADMINISTRATION ERROR [None]
  - FANCONI SYNDROME ACQUIRED [None]
